FAERS Safety Report 11813941 (Version 1)
Quarter: 2015Q4

REPORT INFORMATION
  Report Type: Spontaneous
  Country: US (occurrence: None)
  Receive Date: 20151208
  Receipt Date: 20151208
  Transmission Date: 20160305
  Serious: Yes (Hospitalization)
  Sender: FDA-Public Use
  Company Number: None

PATIENT
  Age: 62 Year
  Sex: Female
  Weight: 66.68 kg

DRUGS (6)
  1. PARAPLATIN [Suspect]
     Active Substance: CARBOPLATIN
     Indication: BREAST CANCER
     Dosage: AUC 6 IV Q 3 WEEKS
     Route: 042
     Dates: start: 20151119
  2. TAXOTERE [Suspect]
     Active Substance: DOCETAXEL
     Indication: BREAST CANCER
     Route: 042
     Dates: start: 20151119
  3. PHENERGAN [Concomitant]
     Active Substance: PROMETHAZINE HYDROCHLORIDE
  4. IMODIUM [Concomitant]
     Active Substance: LOPERAMIDE HYDROCHLORIDE
  5. DEXAMETHASONE. [Concomitant]
     Active Substance: DEXAMETHASONE
  6. ZOFRAN [Concomitant]
     Active Substance: ONDANSETRON HYDROCHLORIDE

REACTIONS (6)
  - Abdominal pain [None]
  - Diarrhoea [None]
  - Proteus test positive [None]
  - Febrile neutropenia [None]
  - Urinary tract infection [None]
  - Colitis [None]

NARRATIVE: CASE EVENT DATE: 20151126
